FAERS Safety Report 16123698 (Version 1)
Quarter: 2019Q1

REPORT INFORMATION
  Report Type: Spontaneous
  Country: IT (occurrence: IT)
  Receive Date: 20190327
  Receipt Date: 20190327
  Transmission Date: 20190418
  Serious: Yes (Hospitalization)
  Sender: FDA-Public Use
  Company Number: IT-MYLANLABS-2019M1026640

PATIENT
  Age: 84 Year
  Sex: Female

DRUGS (6)
  1. ALLOPURINOLO [Concomitant]
     Active Substance: ALLOPURINOL
  2. VALSARTAN. [Concomitant]
     Active Substance: VALSARTAN
  3. TORASEMIDE [Concomitant]
     Active Substance: TORSEMIDE
     Dosage: UNK
  4. CIPROFLOXACIN. [Suspect]
     Active Substance: CIPROFLOXACIN
     Indication: PRODUCT USED FOR UNKNOWN INDICATION
     Dosage: 1000 MILLIGRAM, QD
     Route: 048
     Dates: start: 20080404, end: 20080410
  5. IDROCLOROTIAZIDE [Concomitant]
     Active Substance: HYDROCHLOROTHIAZIDE
  6. TICLOPIDINA                        /00543201/ [Concomitant]

REACTIONS (1)
  - Vascular purpura [Not Recovered/Not Resolved]

NARRATIVE: CASE EVENT DATE: 20080412
